FAERS Safety Report 7158320-6 (Version None)
Quarter: 2010Q4

REPORT INFORMATION
  Report Type: 
  Country: None (occurrence: None)
  Receive Date: 20101214
  Receipt Date: 20101206
  Transmission Date: 20110411
  Serious: Yes (Hospitalization)
  Sender: FDA-Public Use
  Company Number: US-US-EMD SERONO, INC.-7001415

PATIENT
  Sex: Female

DRUGS (4)
  1. REBIF [Suspect]
     Indication: MULTIPLE SCLEROSIS
     Route: 058
     Dates: start: 20070606, end: 20100201
  2. REBIF [Suspect]
     Route: 058
     Dates: start: 20100201, end: 20100101
  3. REBIF [Suspect]
     Route: 058
     Dates: start: 20100501, end: 20100501
  4. REBIF [Suspect]
     Route: 058
     Dates: start: 20100602

REACTIONS (5)
  - CHRONIC OBSTRUCTIVE PULMONARY DISEASE [None]
  - FALL [None]
  - GAIT DISTURBANCE [None]
  - PNEUMONIA [None]
  - THYROID DISORDER [None]
